FAERS Safety Report 25164366 (Version 1)
Quarter: 2025Q2

REPORT INFORMATION
  Report Type: Spontaneous
  Country: US (occurrence: US)
  Receive Date: 20250405
  Receipt Date: 20250405
  Transmission Date: 20250717
  Serious: Yes (Other)
  Sender: SANOFI AVENTIS
  Company Number: US-SA-2025SA095003

PATIENT
  Age: 72 Year
  Sex: Male

DRUGS (10)
  1. DUPIXENT [Suspect]
     Active Substance: DUPILUMAB
     Indication: Dermatitis atopic
     Dosage: 300 MG, QOW
     Route: 058
  2. VITAMIN D NOS [Concomitant]
     Active Substance: CHOLECALCIFEROL\ERGOCALCIFEROL
  3. FEXOFENADINE [Concomitant]
     Active Substance: FEXOFENADINE HYDROCHLORIDE
  4. HYDROXYZINE [Concomitant]
     Active Substance: HYDROXYZINE HYDROCHLORIDE
  5. LEVOTHYROXINE [Concomitant]
     Active Substance: LEVOTHYROXINE
  6. ONDANSETRON [Concomitant]
     Active Substance: ONDANSETRON
  7. PANTOPRAZOLE [Concomitant]
     Active Substance: PANTOPRAZOLE
  8. RANOLAZINE [Concomitant]
     Active Substance: RANOLAZINE
  9. SIMVASTATIN [Concomitant]
     Active Substance: SIMVASTATIN
  10. TACROLIMUS [Concomitant]
     Active Substance: TACROLIMUS

REACTIONS (9)
  - Coronary artery occlusion [Not Recovered/Not Resolved]
  - Skin fissures [Not Recovered/Not Resolved]
  - Chronic obstructive pulmonary disease [Not Recovered/Not Resolved]
  - Dyspnoea [Not Recovered/Not Resolved]
  - Eczema [Not Recovered/Not Resolved]
  - Dry skin [Not Recovered/Not Resolved]
  - Pruritus [Not Recovered/Not Resolved]
  - Dry eye [Not Recovered/Not Resolved]
  - Product dose omission in error [Unknown]

NARRATIVE: CASE EVENT DATE: 20250301
